FAERS Safety Report 12866925 (Version 1)
Quarter: 2016Q4

REPORT INFORMATION
  Report Type: Spontaneous
  Country: US (occurrence: US)
  Receive Date: 20161020
  Receipt Date: 20161020
  Transmission Date: 20170207
  Serious: No
  Sender: FDA-Public Use
  Company Number: US-JAZZ-2016-US-014451

PATIENT
  Age: 28 Year
  Sex: Female

DRUGS (11)
  1. MULTIVITAMINS [Concomitant]
     Active Substance: VITAMINS
  2. ZYRTEC [Concomitant]
     Active Substance: CETIRIZINE HYDROCHLORIDE
  3. NEURONTIN [Concomitant]
     Active Substance: GABAPENTIN
  4. VITAMIN D [Concomitant]
     Active Substance: CHOLECALCIFEROL
  5. XYREM [Suspect]
     Active Substance: SODIUM OXYBATE
     Indication: NARCOLEPSY
     Dosage: 2.25 G, BID
     Route: 048
     Dates: start: 201303, end: 201303
  6. XYREM [Suspect]
     Active Substance: SODIUM OXYBATE
     Indication: CATAPLEXY
     Dosage: DOSE ADJUSTMENTS
     Route: 048
     Dates: start: 201303, end: 201406
  7. XYREM [Suspect]
     Active Substance: SODIUM OXYBATE
     Dosage: 4.5 G, BID
     Route: 048
     Dates: start: 201406
  8. LORAZEPAM. [Concomitant]
     Active Substance: LORAZEPAM
  9. PROGESTERONE. [Concomitant]
     Active Substance: PROGESTERONE
  10. PROBIOTIC ACIDOPHILUS [Concomitant]
     Active Substance: LACTOBACILLUS ACIDOPHILUS
  11. PROVIGIL [Concomitant]
     Active Substance: MODAFINIL

REACTIONS (1)
  - Somnambulism [Unknown]

NARRATIVE: CASE EVENT DATE: 20160731
